FAERS Safety Report 6763322-5 (Version None)
Quarter: 2010Q2

REPORT INFORMATION
  Report Type: 
  Country: None (occurrence: None)
  Receive Date: 20100610
  Receipt Date: 20100527
  Transmission Date: 20101027
  Serious: Yes (Life-Threatening, Other)
  Sender: FDA-Public Use
  Company Number: GT-TYCO HEALTHCARE/MALLINCKRODT-T201001400

PATIENT

DRUGS (2)
  1. CONRAY [Suspect]
     Indication: COMPUTERISED TOMOGRAM
     Dosage: 15 ML ORAL
     Route: 048
     Dates: start: 20100413, end: 20100413
  2. CONRAY [Suspect]
     Dosage: 25 ML IV
     Route: 042
     Dates: start: 20100413, end: 20100413

REACTIONS (12)
  - ASTHENIA [None]
  - FEELING COLD [None]
  - HEADACHE [None]
  - HYPERHIDROSIS [None]
  - HYPOAESTHESIA ORAL [None]
  - HYPOTENSION [None]
  - NAUSEA [None]
  - PULSE ABSENT [None]
  - RASH [None]
  - RESPIRATORY DISTRESS [None]
  - TACHYCARDIA [None]
  - TREMOR [None]
